FAERS Safety Report 10363951 (Version 1)
Quarter: 2014Q3

REPORT INFORMATION
  Report Type: Spontaneous
  Country: IN (occurrence: None)
  Receive Date: 20140801
  Receipt Date: 20140801
  Transmission Date: 20150326
  Serious: Yes (Hospitalization)
  Sender: FDA-Public Use
  Company Number: SYM-2014-23495

PATIENT
  Age: 42 Year
  Sex: Male

DRUGS (1)
  1. METRONIDAZOLE. [Suspect]
     Active Substance: METRONIDAZOLE
     Indication: DIARRHOEA

REACTIONS (9)
  - Cerebellar syndrome [None]
  - Gait disturbance [None]
  - Romberg test positive [None]
  - Ataxia [None]
  - Hypotonia [None]
  - Dizziness [None]
  - Encephalopathy [None]
  - Vertigo [None]
  - Dysarthria [None]
